FAERS Safety Report 8746556 (Version 2)
Quarter: 2012Q4

REPORT INFORMATION
  Report Type: Report from Study
  Country: JP (occurrence: JP)
  Receive Date: 20120827
  Receipt Date: 20121017
  Transmission Date: 20130627
  Serious: Yes (Other)
  Sender: FDA-Public Use
  Company Number: JP-UCBSA-064140

PATIENT
  Age: 83 Year
  Sex: Male

DRUGS (5)
  1. E KEPPRA [Suspect]
     Indication: SIMPLE PARTIAL SEIZURES
     Route: 048
     Dates: start: 20120304, end: 20120322
  2. E KEPPRA [Suspect]
     Indication: PARTIAL SEIZURES WITH SECONDARY GENERALISATION
     Route: 048
     Dates: start: 20120304, end: 20120322
  3. ALEVIATIN [Suspect]
     Indication: PARTIAL SEIZURES WITH SECONDARY GENERALISATION
     Dosage: DAILY DOSE : 200 MG
     Route: 048
     Dates: end: 20120322
  4. ALEVIATIN [Suspect]
     Indication: SIMPLE PARTIAL SEIZURES
     Dosage: DAILY DOSE : 200 MG
     Route: 048
     Dates: end: 20120322
  5. PLAVIX [Suspect]
     Dosage: DAILY DOSE: 75 MG
     Route: 048
     Dates: end: 20120322

REACTIONS (2)
  - Platelet count decreased [Recovered/Resolved]
  - Rash [Recovered/Resolved]
